FAERS Safety Report 19056375 (Version 1)
Quarter: 2021Q1

REPORT INFORMATION
  Report Type: Spontaneous
  Country: AU (occurrence: AU)
  Receive Date: 20210324
  Receipt Date: 20210324
  Transmission Date: 20210420
  Serious: Yes (Other)
  Sender: FDA-Public Use
  Company Number: NVSC2021AU066681

PATIENT
  Age: 40 Year
  Sex: Female

DRUGS (1)
  1. SECUKINUMAB. [Suspect]
     Active Substance: SECUKINUMAB
     Indication: PUSTULAR PSORIASIS
     Dosage: UNK
     Route: 065
     Dates: start: 2015

REACTIONS (4)
  - Urticaria [Unknown]
  - Product use in unapproved indication [Unknown]
  - Eosinophilia [Recovered/Resolved]
  - Swelling face [Unknown]
